FAERS Safety Report 11301304 (Version 1)
Quarter: 2015Q2

REPORT INFORMATION
  Report Type: Spontaneous
  Country: US (occurrence: None)
  Receive Date: 20150626
  Receipt Date: 20150626
  Transmission Date: 20150821
  Serious: No
  Sender: FDA-Public Use
  Company Number: 1000075818

PATIENT
  Age: 63 Year
  Sex: Female

DRUGS (1)
  1. LINZESS [Suspect]
     Active Substance: LINACLOTIDE
     Dosage: 145 MCG, 1 IN 1 D
     Dates: start: 20150401, end: 20150403

REACTIONS (1)
  - Vision blurred [None]

NARRATIVE: CASE EVENT DATE: 20150402
